FAERS Safety Report 8093689-X (Version None)
Quarter: 2012Q1

REPORT INFORMATION
  Report Type: 
  Country: None (occurrence: None)
  Receive Date: 20120129
  Receipt Date: 20110929
  Transmission Date: 20120608
  Serious: No
  Sender: FDA-Public Use
  Company Number: US-ABBOTT-11P-163-0859962-00

PATIENT
  Sex: Male
  Weight: 103.97 kg

DRUGS (6)
  1. FLUTICASONE PROPIONATE [Concomitant]
     Indication: PSORIASIS
     Route: 061
  2. HUMIRA [Suspect]
     Indication: PSORIASIS
     Dates: start: 20100901, end: 20110901
  3. CRESTOR [Concomitant]
     Indication: BLOOD CHOLESTEROL INCREASED
  4. HYZAAR [Concomitant]
     Indication: HYPERTENSION
  5. CLOBETASOL [Concomitant]
     Indication: PSORIASIS
     Route: 061
  6. HUMIRA [Suspect]
     Indication: PSORIATIC ARTHROPATHY

REACTIONS (7)
  - INFLUENZA [None]
  - PSORIASIS [None]
  - COUGH [None]
  - ARTHRALGIA [None]
  - DRUG INEFFECTIVE [None]
  - INCREASED UPPER AIRWAY SECRETION [None]
  - JOINT EFFUSION [None]
